FAERS Safety Report 9044871 (Version 11)
Quarter: 2015Q3

REPORT INFORMATION
  Report Type: Spontaneous
  Country: US (occurrence: US)
  Receive Date: 20130130
  Receipt Date: 20150710
  Transmission Date: 20151125
  Serious: Yes (Hospitalization, Other)
  Sender: FDA-Public Use
  Company Number: US-GLAXOSMITHKLINE-A1009540A

PATIENT
  Sex: Female

DRUGS (13)
  1. FLOLAN [Suspect]
     Active Substance: EPOPROSTENOL SODIUM
     Dosage: UNK
     Dates: start: 20030821
  2. FLOLAN [Suspect]
     Active Substance: EPOPROSTENOL SODIUM
     Dosage: UNK
     Dates: start: 20030821
  3. FLOLAN [Suspect]
     Active Substance: EPOPROSTENOL SODIUM
     Dosage: UNK
  4. WARFARIN [Concomitant]
     Active Substance: WARFARIN
  5. FLOLAN [Suspect]
     Active Substance: EPOPROSTENOL SODIUM
     Dosage: 19.9 NG/KG/MIN, CO
     Route: 042
  6. FLOLAN [Suspect]
     Active Substance: EPOPROSTENOL SODIUM
     Dosage: UNK
     Dates: start: 20030821
  7. FLOLAN [Suspect]
     Active Substance: EPOPROSTENOL SODIUM
     Dosage: UNK
     Dates: start: 20030821
  8. REVATIO [Concomitant]
     Active Substance: SILDENAFIL CITRATE
  9. FLOLAN [Suspect]
     Active Substance: EPOPROSTENOL SODIUM
     Dosage: UNK
     Dates: start: 20030821
  10. FLOLAN [Suspect]
     Active Substance: EPOPROSTENOL SODIUM
     Indication: PULMONARY ARTERIAL HYPERTENSION
     Dosage: 19.9 NG/KG/MINUTE CONTINUOUSLYVIAL STRENGTH 1.5 MG, 30,000 NG/ML CONCENTRATION, PUMP RATE 55 ML/DAY
     Route: 042
     Dates: start: 20030818
  11. FLOLAN [Suspect]
     Active Substance: EPOPROSTENOL SODIUM
     Dosage: UNK
     Dates: start: 20030821
  12. FLOLAN [Suspect]
     Active Substance: EPOPROSTENOL SODIUM
     Dosage: 19.9NG/KG/MIN, CONTINUOUSLY, 55ML/DAY
  13. CYMBALTA [Suspect]
     Active Substance: DULOXETINE HYDROCHLORIDE
     Indication: PRODUCT USED FOR UNKNOWN INDICATION
     Route: 065

REACTIONS (27)
  - Device breakage [Recovered/Resolved]
  - Feeling abnormal [Unknown]
  - Hot flush [Unknown]
  - Hospitalisation [Not Recovered/Not Resolved]
  - Diarrhoea [Unknown]
  - Thyroid disorder [Unknown]
  - Influenza [Unknown]
  - Nausea [Unknown]
  - Vomiting [Unknown]
  - Malaise [Unknown]
  - Central venous catheterisation [Recovered/Resolved]
  - Hyperhidrosis [Unknown]
  - Weight decreased [Unknown]
  - Arthritis [Unknown]
  - Fibromyalgia [Unknown]
  - Endoscopy [Unknown]
  - Pyrexia [Unknown]
  - Nasopharyngitis [Unknown]
  - Application site rash [Unknown]
  - Oral discomfort [Unknown]
  - Insomnia [Unknown]
  - Anaemia [Unknown]
  - Colonoscopy [Unknown]
  - Urinary tract infection [Unknown]
  - Medical device complication [Unknown]
  - Sleep terror [Unknown]
  - Ill-defined disorder [Unknown]

NARRATIVE: CASE EVENT DATE: 2013
